FAERS Safety Report 16706494 (Version 1)
Quarter: 2019Q3

REPORT INFORMATION
  Report Type: Spontaneous
  Country: US (occurrence: US)
  Receive Date: 20190815
  Receipt Date: 20190815
  Transmission Date: 20191004
  Serious: No
  Sender: FDA-Public Use
  Company Number: US-PACIRA-201400184

PATIENT

DRUGS (1)
  1. EXPAREL [Suspect]
     Active Substance: BUPIVACAINE
     Indication: ORTHOPAEDIC PROCEDURE
     Dosage: MIXED WITH SODIUM CHLORIDE FOR IRRIGATION AND NOT INJECTION.

REACTIONS (2)
  - Product preparation issue [Unknown]
  - Incorrect route of product administration [Unknown]
